FAERS Safety Report 10149965 (Version 2)
Quarter: 2014Q2

REPORT INFORMATION
  Report Type: Spontaneous
  Country: AU (occurrence: AU)
  Receive Date: 20140502
  Receipt Date: 20140502
  Transmission Date: 20141212
  Serious: Yes (Hospitalization, Other)
  Sender: FDA-Public Use
  Company Number: AU-ALLERGAN-1407890US

PATIENT
  Age: 68 Year
  Sex: Female

DRUGS (7)
  1. BOTOX [Suspect]
     Indication: TORTICOLLIS
     Dosage: 60 UNITS, SINGLE
     Route: 030
     Dates: start: 20140329, end: 20140329
  2. BOTOX [Suspect]
     Dosage: 20 UNITS, SINGLE
     Route: 030
     Dates: start: 20140329, end: 20140329
  3. BOTOX [Suspect]
     Dosage: 30 UNITS, SINGLE
     Route: 030
     Dates: start: 20140329, end: 20140329
  4. BOTOX [Suspect]
     Dosage: 20 UNITS, SINGLE
     Route: 030
     Dates: start: 20140329, end: 20140329
  5. BOTOX [Suspect]
     Dosage: 15 UNITS, SINGLE
     Route: 030
     Dates: start: 20140329, end: 20140329
  6. BOTOX [Suspect]
     Dosage: 20 UNITS, SINGLE
     Route: 030
     Dates: start: 20140329, end: 20140329
  7. BOTOX [Suspect]
     Dosage: 20 UNITS, SINGLE
     Route: 030
     Dates: start: 20140329, end: 20140329

REACTIONS (6)
  - Musculoskeletal discomfort [Recovered/Resolved]
  - Poor quality sleep [Recovering/Resolving]
  - Anxiety [Recovering/Resolving]
  - Depression [Recovering/Resolving]
  - Muscular weakness [Recovered/Resolved]
  - Dysphagia [Recovering/Resolving]
